FAERS Safety Report 4686081-9 (Version None)
Quarter: 2005Q2

REPORT INFORMATION
  Report Type: 
  Country: None (occurrence: None)
  Receive Date: 20050609
  Receipt Date: 19901107
  Transmission Date: 20051028
  Serious: Yes (Life-Threatening)
  Sender: FDA-Public Use
  Company Number: 199020475HAG

PATIENT
  Age: 72 Year
  Sex: Male
  Weight: 70 kg

DRUGS (9)
  1. FRUSEMIDE [Suspect]
  2. CORDARONE [Suspect]
     Indication: ARRHYTHMIA
     Dates: start: 19881001
  3. ASPIRIN [Suspect]
  4. CAPTOPRIL [Suspect]
     Indication: ARRHYTHMIA
  5. NITRODERM [Suspect]
     Route: 061
  6. NORFLOXACIN [Suspect]
  7. RANITIDINE [Suspect]
     Indication: GASTRIC ULCER
  8. SLOW-K [Suspect]
     Dosage: DOSE: 6X1
  9. CARAFATE [Suspect]

REACTIONS (2)
  - CARDIAC ARREST [None]
  - PULMONARY FIBROSIS [None]
